FAERS Safety Report 22070843 (Version 6)
Quarter: 2024Q1

REPORT INFORMATION
  Report Type: Spontaneous
  Country: JP (occurrence: JP)
  Receive Date: 20230307
  Receipt Date: 20240103
  Transmission Date: 20240410
  Serious: Yes (Hospitalization, Other)
  Sender: FDA-Public Use
  Company Number: JP-BAXTER-2023BAX014458

PATIENT
  Age: 37 Year
  Sex: Male
  Weight: 55.4 kg

DRUGS (16)
  1. CYCLOPHOSPHAMIDE [Suspect]
     Active Substance: CYCLOPHOSPHAMIDE
     Dosage: 40 MG/KG/DAY, DOSAGE FORM: INJECTION
     Route: 065
     Dates: start: 20230125, end: 20230125
  2. TACROLIMUS [Suspect]
     Active Substance: TACROLIMUS
     Indication: Prophylaxis against transplant rejection
     Dosage: 3 MG, ONCE A DAY
     Route: 048
     Dates: start: 20230221
  3. TACROLIMUS [Suspect]
     Active Substance: TACROLIMUS
     Dosage: 4 MG/DAY
     Route: 048
     Dates: start: 20230731
  4. TACROLIMUS [Suspect]
     Active Substance: TACROLIMUS
     Dosage: 2 MG/DAY
     Route: 048
     Dates: start: 20231125
  5. TACROLIMUS [Suspect]
     Active Substance: TACROLIMUS
     Dosage: 1.5 MG/DAY
     Route: 048
     Dates: start: 20231225
  6. EDOXABAN TOSYLATE [Concomitant]
     Active Substance: EDOXABAN TOSYLATE
     Indication: Thrombosis prophylaxis
     Dosage: 30 MG/DAY
     Route: 048
     Dates: start: 20230207
  7. FLUCONAZOLE [Concomitant]
     Active Substance: FLUCONAZOLE
     Indication: Infection prophylaxis
     Dosage: 100 MG/DAY
     Route: 048
     Dates: start: 20230201
  8. SULFAMETHOXAZOLE\TRIMETHOPRIM [Concomitant]
     Active Substance: SULFAMETHOXAZOLE\TRIMETHOPRIM
     Indication: Infection prophylaxis
     Dosage: 1 DOSAGE FORM/DAY
     Route: 048
     Dates: start: 20230130
  9. VALACYCLOVIR HYDROCHLORIDE [Concomitant]
     Active Substance: VALACYCLOVIR HYDROCHLORIDE
     Indication: Infection prophylaxis
     Dosage: 500 MG/DAY
     Route: 048
     Dates: start: 20230128
  10. RABEPRAZOLE SODIUM [Concomitant]
     Active Substance: RABEPRAZOLE SODIUM
     Indication: Gastritis prophylaxis
     Dosage: 10 MG/DAY
     Route: 048
     Dates: start: 20230128
  11. REBAMIPIDE [Concomitant]
     Active Substance: REBAMIPIDE
     Indication: Gastritis prophylaxis
     Dosage: 300 MG/DAY (100 MG X EVERY 8 HOURS)
     Route: 048
     Dates: start: 20230128
  12. URSODIOL [Concomitant]
     Active Substance: URSODIOL
     Indication: Hypercholia
     Dosage: 600 MG/DAY (200 MG X EVERY 8 HOURS)
     Route: 048
     Dates: start: 20230128
  13. CALONAL [Concomitant]
     Active Substance: ACETAMINOPHEN
     Indication: Wound complication
     Dosage: 500 MG
     Route: 048
     Dates: start: 20230201
  14. MEDROL [Concomitant]
     Active Substance: METHYLPREDNISOLONE
     Indication: Contrast media allergy
     Dosage: 32 MG/DAY
     Route: 048
     Dates: start: 20230203, end: 20230204
  15. HEBSBULIN IH [Concomitant]
     Indication: Antiviral prophylaxis
     Dosage: 14000 IU, POLYETHYLENE GLYCOL TREATED ANTI-HBS HUMAN IMMUNOGLOBULIN
     Route: 041
     Dates: start: 20230121
  16. CELLCEPT [Concomitant]
     Active Substance: MYCOPHENOLATE MOFETIL
     Dosage: UNK
     Route: 065

REACTIONS (10)
  - Transplant rejection [Recovered/Resolved]
  - Enterocolitis bacterial [Recovered/Resolved]
  - Pyrexia [Recovered/Resolved]
  - Headache [Recovered/Resolved]
  - Hypophagia [Recovered/Resolved]
  - General physical health deterioration [Recovered/Resolved]
  - Klebsiella bacteraemia [Unknown]
  - Tremor [Unknown]
  - Tachycardia [Unknown]
  - Blood pressure decreased [Unknown]

NARRATIVE: CASE EVENT DATE: 20230225
